FAERS Safety Report 7178645-8 (Version None)
Quarter: 2010Q4

REPORT INFORMATION
  Report Type: 
  Country: None (occurrence: None)
  Receive Date: 20101221
  Receipt Date: 20101213
  Transmission Date: 20110411
  Serious: No
  Sender: FDA-Public Use
  Company Number: US-BIOGENIDEC-2010BI043829

PATIENT
  Age: 61 Year
  Sex: Female

DRUGS (2)
  1. TYSABRI [Suspect]
     Indication: MULTIPLE SCLEROSIS
     Route: 042
     Dates: start: 20100712
  2. TYSABRI [Suspect]
     Route: 042
     Dates: start: 20070423, end: 20090925

REACTIONS (3)
  - DEVICE DIFFICULT TO USE [None]
  - FEAR [None]
  - POOR VENOUS ACCESS [None]
